FAERS Safety Report 20844470 (Version 1)
Quarter: 2022Q2

REPORT INFORMATION
  Report Type: Spontaneous
  Country: None (occurrence: PT)
  Receive Date: 20220518
  Receipt Date: 20220518
  Transmission Date: 20220721
  Serious: Yes (Disabling)
  Sender: FDA-Public Use
  Company Number: PT-Canton Laboratories, LLC-2128903

PATIENT
  Age: 63 Year
  Sex: Male

DRUGS (6)
  1. NAPROSYN [Suspect]
     Active Substance: NAPROXEN
     Indication: Arthralgia
     Route: 065
  2. COMIRNATY [Suspect]
     Active Substance: TOZINAMERAN
     Route: 030
     Dates: start: 20210618, end: 20210618
  3. METAMIZOLE [Suspect]
     Active Substance: METAMIZOLE
  4. CLONIXIN [Suspect]
     Active Substance: CLONIXIN
  5. IBUPROFEN [Suspect]
     Active Substance: IBUPROFEN
  6. METAMIZOLE MAGNESIUM [Suspect]
     Active Substance: METAMIZOLE MAGNESIUM

REACTIONS (1)
  - Arthralgia [Not Recovered/Not Resolved]

NARRATIVE: CASE EVENT DATE: 20210620
